FAERS Safety Report 8168124-3 (Version None)
Quarter: 2012Q1

REPORT INFORMATION
  Report Type: 
  Country: None (occurrence: None)
  Receive Date: 20120227
  Receipt Date: 20120216
  Transmission Date: 20120608
  Serious: Yes (Hospitalization)
  Sender: FDA-Public Use
  Company Number: US-ACTELION-A-US2011-55233

PATIENT

DRUGS (4)
  1. ADCIRCA [Concomitant]
  2. FLOLAN [Concomitant]
  3. TRACLEER [Suspect]
     Indication: PULMONARY ARTERIAL HYPERTENSION
     Dosage: 125 MG, BID
     Route: 048
     Dates: start: 20090501
  4. TRACLEER [Suspect]
     Dosage: 62.5 MG, BID
     Route: 048
     Dates: start: 20090401

REACTIONS (3)
  - PURULENT DISCHARGE [None]
  - DEVICE RELATED INFECTION [None]
  - ANAEMIA [None]
